FAERS Safety Report 8472668-4 (Version None)
Quarter: 2012Q2

REPORT INFORMATION
  Report Type: 
  Country: None (occurrence: None)
  Receive Date: 20120627
  Receipt Date: 20120507
  Transmission Date: 20120825
  Serious: No
  Sender: FDA-Public Use
  Company Number: US-AMGEN-USASP2012031036

PATIENT
  Age: 86 Year
  Sex: Male
  Weight: 45 kg

DRUGS (6)
  1. PREDNISONE TAB [Concomitant]
     Dosage: 10 MG, UNK
     Dates: start: 20110801
  2. PROCRIT [Suspect]
     Indication: ANAEMIA
     Dosage: 40000 IU, UNK
     Dates: start: 20120301, end: 20120301
  3. ZYTIGA [Concomitant]
     Dosage: 500 MG, BID
     Route: 048
     Dates: start: 20111001
  4. ZYTIGA [Concomitant]
     Indication: PROSTATE CANCER
     Dosage: 1000 MG, QID
     Route: 048
     Dates: start: 20110801, end: 20111001
  5. PROCRIT [Suspect]
     Dosage: 60000 IU, UNK
  6. PREDNISONE TAB [Concomitant]
     Dosage: 5 MG, UNK

REACTIONS (1)
  - THERAPEUTIC RESPONSE DELAYED [None]
